FAERS Safety Report 4573916-3 (Version None)
Quarter: 2005Q1

REPORT INFORMATION
  Report Type: 
  Country: None (occurrence: None)
  Receive Date: 20050203
  Receipt Date: 20050114
  Transmission Date: 20050727
  Serious: Yes (Life-Threatening, Hospitalization)
  Sender: FDA-Public Use
  Company Number: TCI2005A00138

PATIENT
  Age: 35 Year
  Sex: Female

DRUGS (12)
  1. LEUPLIN                 (LEUPROLIDE ACETATE) [Suspect]
     Indication: BREAST CANCER
     Dosage: 3.75 MG (3.75 MG 1 IN 28 D)
     Route: 058
     Dates: start: 20041207
  2. LASIX [Concomitant]
  3. ALDACTONE [Concomitant]
  4. FLUNITRAN             (TROCHLORMETHIAZIDE) [Concomitant]
  5. NU-LOTAN               (LOSARTAN POTASSIUM) [Concomitant]
  6. CARVEDILOL [Concomitant]
  7. ASPIRIN [Concomitant]
  8. WARFARIN SODIUM [Concomitant]
  9. ASPARA K                 (ASPARTATE POTASSIUM) [Concomitant]
  10. MUCOSTA                (REBAMIPIDE) [Concomitant]
  11. MAGNESIUM OXIDE [Concomitant]
  12. NOLVADEX [Concomitant]

REACTIONS (3)
  - FATIGUE [None]
  - PANCYTOPENIA [None]
  - PYREXIA [None]
